FAERS Safety Report 15275843 (Version 1)
Quarter: 2018Q3

REPORT INFORMATION
  Report Type: Spontaneous
  Country: US (occurrence: US)
  Receive Date: 20180727
  Receipt Date: 20180727
  Transmission Date: 20181010
  Serious: No
  Sender: FDA-Public Use
  Company Number: None

PATIENT
  Age: 69 Year
  Sex: Female

DRUGS (14)
  1. ALLOPURINOL. [Concomitant]
     Active Substance: ALLOPURINOL
  2. FUROSEMIDE. [Concomitant]
     Active Substance: FUROSEMIDE
  3. PREDNISONE. [Concomitant]
     Active Substance: PREDNISONE
  4. CETIRIZINE [Concomitant]
     Active Substance: CETIRIZINE HYDROCHLORIDE
  5. ONDANSETRON [Concomitant]
     Active Substance: ONDANSETRON
  6. AMLODIPINE [Concomitant]
     Active Substance: AMLODIPINE BESYLATE
  7. SENNA [Concomitant]
     Active Substance: SENNA LEAF\SENNOSIDES\SENNOSIDES A AND B
  8. CEFEPIME [Concomitant]
     Active Substance: CEFEPIME HYDROCHLORIDE
  9. DOCUSATE [Concomitant]
     Active Substance: DOCUSATE
  10. INSULIN GLARGINE [Concomitant]
     Active Substance: INSULIN GLARGINE
  11. TRETINOIN. [Suspect]
     Active Substance: TRETINOIN
     Indication: LEUKAEMIA
     Route: 048
     Dates: start: 20180522
  12. ACYCLOVIR. [Concomitant]
     Active Substance: ACYCLOVIR
  13. ARSENIC TRIOXIDE [Concomitant]
     Active Substance: ARSENIC TRIOXIDE
  14. INSULIN ASPART [Concomitant]
     Active Substance: INSULIN ASPART

REACTIONS (6)
  - Weight increased [None]
  - Pyrexia [None]
  - White blood cell count increased [None]
  - Hypoxia [None]
  - Acute promyelocytic leukaemia differentiation syndrome [None]
  - Sepsis [None]

NARRATIVE: CASE EVENT DATE: 20180606
